FAERS Safety Report 7536777-6 (Version None)
Quarter: 2011Q2

REPORT INFORMATION
  Report Type: 
  Country: None (occurrence: None)
  Receive Date: 20110608
  Receipt Date: 20110608
  Transmission Date: 20111010
  Serious: Yes (Hospitalization)
  Sender: FDA-Public Use
  Company Number: None

PATIENT
  Age: 87 Year
  Sex: Male
  Weight: 77.1115 kg

DRUGS (10)
  1. PROSCAR [Concomitant]
  2. SYNTHROID [Concomitant]
  3. ZOCOR [Suspect]
     Indication: BLOOD CHOLESTEROL INCREASED
     Dosage: 80MG ONCE DAILY PO
     Route: 048
     Dates: start: 20100101, end: 20110604
  4. TOPROL-XL [Concomitant]
  5. PRILOSEC [Concomitant]
  6. COUMADIN [Concomitant]
  7. BUMEX [Concomitant]
  8. LISINOPRIL [Concomitant]
  9. LASIX [Concomitant]
  10. FERROUS SULFATE TAB [Concomitant]

REACTIONS (6)
  - NAUSEA [None]
  - GAIT DISTURBANCE [None]
  - MYALGIA [None]
  - DYSSTASIA [None]
  - MUSCULAR WEAKNESS [None]
  - VERTIGO [None]
